FAERS Safety Report 25832007 (Version 1)
Quarter: 2025Q3

REPORT INFORMATION
  Report Type: Spontaneous
  Country: US (occurrence: None)
  Receive Date: 20250921
  Receipt Date: 20250921
  Transmission Date: 20251021
  Serious: Yes (Other)
  Sender: FDA-CTU
  Company Number: None

PATIENT
  Age: 49 Year
  Sex: Female
  Weight: 53.1 kg

DRUGS (12)
  1. XEOMIN [Suspect]
     Active Substance: INCOBOTULINUMTOXINA
     Indication: Skin wrinkling
     Route: 030
     Dates: start: 20250911, end: 20250911
  2. ADDERALL [Concomitant]
     Active Substance: AMPHETAMINE ASPARTATE\AMPHETAMINE SULFATE\DEXTROAMPHETAMINE SACCHARATE\DEXTROAMPHETAMINE SULFATE
  3. busparione [Concomitant]
  4. DESVENLAFAXINE [Concomitant]
     Active Substance: DESVENLAFAXINE
  5. REXULTI [Concomitant]
     Active Substance: BREXPIPRAZOLE
  6. REGLAN [Concomitant]
     Active Substance: METOCLOPRAMIDE HYDROCHLORIDE
  7. RIZATRIPTAN [Concomitant]
     Active Substance: RIZATRIPTAN
  8. ubrevely [Concomitant]
  9. BACLOFEN [Concomitant]
     Active Substance: BACLOFEN
  10. MAGNESIUM GLYCINATE [Concomitant]
     Active Substance: MAGNESIUM GLYCINATE
  11. VITAMIN D [Concomitant]
     Active Substance: VITAMIN D NOS
  12. VITAMIN B COMPLEX [Concomitant]
     Active Substance: CYANOCOBALAMIN\DEXPANTHENOL\NIACINAMIDE\PYRIDOXINE HYDROCHLORIDE\RIBOFLAVIN 5^-PHOSPHATE SODIUM\THIA

REACTIONS (9)
  - Headache [None]
  - Migraine [None]
  - Neck pain [None]
  - Spinal pain [None]
  - Back pain [None]
  - Constipation [None]
  - Nausea [None]
  - Dizziness [None]
  - Ear disorder [None]

NARRATIVE: CASE EVENT DATE: 20250911
